FAERS Safety Report 23385828 (Version 2)
Quarter: 2024Q1

REPORT INFORMATION
  Report Type: Report from Study
  Country: US (occurrence: US)
  Receive Date: 20240110
  Receipt Date: 20240129
  Transmission Date: 20240410
  Serious: Yes (Hospitalization, Other)
  Sender: FDA-Public Use
  Company Number: US-ABBVIE-5528871

PATIENT
  Sex: Female

DRUGS (2)
  1. RINVOQ [Suspect]
     Active Substance: UPADACITINIB
     Indication: Rheumatoid arthritis
     Dosage: LAST ADMIN DATE JUN 2023
     Route: 048
     Dates: start: 20230601
  2. RINVOQ [Suspect]
     Active Substance: UPADACITINIB
     Indication: Rheumatoid arthritis
     Dosage: UNKNOWN
     Route: 048
     Dates: start: 20230616

REACTIONS (7)
  - Lower limb fracture [Unknown]
  - Hospitalisation [Unknown]
  - Peripheral swelling [Unknown]
  - Arthralgia [Unknown]
  - Fall [Unknown]
  - Pain in extremity [Unknown]
  - Gait inability [Unknown]

NARRATIVE: CASE EVENT DATE: 20230101
